FAERS Safety Report 22181590 (Version 2)
Quarter: 2023Q2

REPORT INFORMATION
  Report Type: Spontaneous
  Country: AU (occurrence: None)
  Receive Date: 20230406
  Receipt Date: 20230525
  Transmission Date: 20230721
  Serious: Yes (Other)
  Sender: FDA-Public Use
  Company Number: AU-ROCHE-3323901

PATIENT
  Sex: Male
  Weight: 79.5 kg

DRUGS (4)
  1. MOSUNETUZUMAB [Suspect]
     Active Substance: MOSUNETUZUMAB
     Indication: Richter^s syndrome
     Route: 065
     Dates: start: 20210707, end: 20211027
  2. PIRTOBRUTINIB [Suspect]
     Active Substance: PIRTOBRUTINIB
     Indication: Richter^s syndrome
     Route: 065
     Dates: start: 20211125, end: 20220321
  3. ASPIRIN [Concomitant]
     Active Substance: ASPIRIN
  4. VALACYCLOVIR HYDROCHLORIDE [Concomitant]
     Active Substance: VALACYCLOVIR HYDROCHLORIDE
     Route: 050

REACTIONS (1)
  - Disease progression [Unknown]
